FAERS Safety Report 21611763 (Version 1)
Quarter: 2022Q4

REPORT INFORMATION
  Report Type: Spontaneous
  Country: US (occurrence: US)
  Receive Date: 20221117
  Receipt Date: 20221117
  Transmission Date: 20230113
  Serious: Yes (Hospitalization, Other)
  Sender: FDA-Public Use
  Company Number: US-STRIDES ARCOLAB LIMITED-2022SP002882

PATIENT
  Age: 14 Year
  Sex: Female

DRUGS (4)
  1. CYCLOSPORINE [Suspect]
     Active Substance: CYCLOSPORINE
     Indication: Idiopathic inflammatory myopathy
     Dosage: UNK, EVERY 12 HRS (3-5 MG/KG/DAY DIVIDED EVERY 12 HOURS)
     Route: 042
  2. CYCLOSPORINE [Suspect]
     Active Substance: CYCLOSPORINE
     Indication: Haemophagocytic lymphohistiocytosis
     Dosage: UNK, ESCALATING DOSES
     Route: 065
  3. ANAKINRA [Suspect]
     Active Substance: ANAKINRA
     Indication: Haemophagocytic lymphohistiocytosis
     Dosage: UNK, ESCALATING DOSES
     Route: 042
  4. METHYLPREDNISOLONE [Concomitant]
     Active Substance: METHYLPREDNISOLONE
     Indication: Idiopathic inflammatory myopathy
     Dosage: 1000 MILLIGRAM (ON DAY 11; PULSE DOSE) PER 3 DAY
     Route: 042

REACTIONS (2)
  - Posterior reversible encephalopathy syndrome [Unknown]
  - Drug ineffective for unapproved indication [Unknown]
